FAERS Safety Report 4362174-0 (Version None)
Quarter: 2004Q2

REPORT INFORMATION
  Report Type: 
  Country: None (occurrence: None)
  Receive Date: 20040517
  Receipt Date: 20040503
  Transmission Date: 20050107
  Serious: Yes (Other)
  Sender: FDA-Public Use
  Company Number: US012499

PATIENT
  Age: 42 Year
  Sex: Male
  Weight: 81.6475 kg

DRUGS (6)
  1. GABITRIL [Suspect]
     Indication: PAIN
     Dosage: 16 MG QHS ORAL
     Route: 048
     Dates: start: 20030501, end: 20030601
  2. GABITRIL [Suspect]
     Indication: PAIN
     Dosage: 16 MG QHS ORAL
     Route: 048
     Dates: start: 20030601, end: 20031001
  3. GABITRIL [Suspect]
     Dosage: 16 MG QD ORAL
     Route: 048
     Dates: start: 20031001, end: 20031001
  4. ADDERALL 10 [Concomitant]
  5. LISINOPRIL [Concomitant]
  6. METHADONE HCL [Concomitant]

REACTIONS (7)
  - CONFUSIONAL STATE [None]
  - CONVULSION [None]
  - COORDINATION ABNORMAL [None]
  - DISTURBANCE IN ATTENTION [None]
  - PANIC ATTACK [None]
  - TREATMENT NONCOMPLIANCE [None]
  - VISION BLURRED [None]
